FAERS Safety Report 19570594 (Version 1)
Quarter: 2021Q3

REPORT INFORMATION
  Report Type: Spontaneous
  Country: CH (occurrence: CH)
  Receive Date: 20210715
  Receipt Date: 20210715
  Transmission Date: 20211014
  Serious: Yes (Other)
  Sender: FDA-Public Use
  Company Number: CH-COLLEGIUM PHARMACEUTICAL, INC.-2021CGM00832

PATIENT
  Sex: Female

DRUGS (3)
  1. CORTISONE [Concomitant]
     Active Substance: CORTISONE
     Dosage: UNK
  2. TAPENTADOL [Suspect]
     Active Substance: TAPENTADOL
     Indication: PRODUCT USED FOR UNKNOWN INDICATION
     Dosage: UNK
     Route: 048
  3. REMICADE [Concomitant]
     Active Substance: INFLIXIMAB
     Dosage: UNK
     Dates: end: 202101

REACTIONS (2)
  - Infection [Not Recovered/Not Resolved]
  - Product contamination microbial [Unknown]

NARRATIVE: CASE EVENT DATE: 2021
